FAERS Safety Report 7984412 (Version 2)
Quarter: 2012Q4

REPORT INFORMATION
  Report Type: 
  Country: US (occurrence: US)
  Receive Date: 20110609
  Receipt Date: 20121102
  Transmission Date: 20130627
  Serious: Yes (Other)
  Sender: FDA-Public Use
  Company Number: US-ASTRAZENECA-2011SE33883

PATIENT
  Age: 52 Year
  Sex: Female

DRUGS (3)
  1. TOPROL XL [Suspect]
     Route: 048
  2. METOPROLOL [Suspect]
     Route: 065
  3. WARFARIN [Concomitant]

REACTIONS (3)
  - Cerebrovascular accident [Unknown]
  - Loss of consciousness [Unknown]
  - Dizziness [Unknown]
